FAERS Safety Report 6665067-9 (Version None)
Quarter: 2010Q2

REPORT INFORMATION
  Report Type: 
  Country: None (occurrence: None)
  Receive Date: 20100402
  Receipt Date: 20100329
  Transmission Date: 20101027
  Serious: No
  Sender: FDA-Public Use
  Company Number: US-BIOGENIDEC-2010BI010394

PATIENT
  Age: 31 Year
  Sex: Female

DRUGS (4)
  1. AVONEX [Suspect]
     Indication: MULTIPLE SCLEROSIS
     Route: 030
     Dates: start: 20100312, end: 20100312
  2. AVONEX [Suspect]
     Route: 030
     Dates: start: 20100319, end: 20100319
  3. AVONEX [Suspect]
     Route: 030
     Dates: start: 20100326
  4. TRAZODONE [Concomitant]
     Indication: SLEEP DISORDER
     Route: 048

REACTIONS (3)
  - DIARRHOEA [None]
  - INFLUENZA LIKE ILLNESS [None]
  - VOMITING [None]
